FAERS Safety Report 12553285 (Version 3)
Quarter: 2016Q4

REPORT INFORMATION
  Report Type: Spontaneous
  Country: US (occurrence: US)
  Receive Date: 20160713
  Receipt Date: 20161021
  Transmission Date: 20170207
  Serious: No
  Sender: FDA-Public Use
  Company Number: US-009507513-1606USA013393

PATIENT
  Age: 68 Year
  Sex: Female
  Weight: 30 kg

DRUGS (32)
  1. ZOFRAN [Suspect]
     Active Substance: ONDANSETRON HYDROCHLORIDE
     Dosage: 8 MG, EVERY 8 HOURS
     Route: 048
     Dates: start: 201606
  2. OMEPRAZOLE. [Concomitant]
     Active Substance: OMEPRAZOLE
     Dosage: 1 CAPSULE DAILY
     Route: 048
     Dates: start: 20150721
  3. ZOFRAN [Suspect]
     Active Substance: ONDANSETRON HYDROCHLORIDE
     Dosage: 16 MG, ONCE (DAY 8 OF CYCLE 1)
     Route: 048
     Dates: start: 20160614, end: 20160614
  4. CARBOPLATIN. [Concomitant]
     Active Substance: CARBOPLATIN
     Dosage: DAY 1 OF CYCLE 1
     Dates: start: 20160607, end: 20160607
  5. TRAZODONE HYDROCHLORIDE. [Concomitant]
     Active Substance: TRAZODONE HYDROCHLORIDE
     Dosage: 1 TABLET EVERY NIGHT AT BEDTIME AS NEEDED
     Route: 048
     Dates: start: 20151006
  6. EMEND [Suspect]
     Active Substance: APREPITANT
     Indication: CHEMOTHERAPY
     Dosage: 150 MG, ONCE (DAY 1 OF CYCLE 2)
     Route: 042
     Dates: start: 20160627, end: 20160627
  7. ZOFRAN [Suspect]
     Active Substance: ONDANSETRON HYDROCHLORIDE
     Dosage: 16 MG, ONCE (DAY 1 OF CYCLE 2)
     Route: 048
     Dates: start: 20160627, end: 20160627
  8. GABAPENTIN. [Concomitant]
     Active Substance: GABAPENTIN
     Dosage: 1 CAPSULE IN THE MORNING AND 2 CAPSULES IN THE EVENING
     Route: 048
     Dates: start: 20110428
  9. EMEND [Suspect]
     Active Substance: APREPITANT
     Indication: PROPHYLAXIS OF NAUSEA AND VOMITING
     Dosage: 150 MG, ONCE (DAY 8 OF CYCLE 1)
     Route: 042
     Dates: start: 20160614, end: 20160614
  10. CARBOPLATIN. [Concomitant]
     Active Substance: CARBOPLATIN
     Dosage: DAY 1 OF CYCLE 2
     Dates: start: 20160627, end: 20160627
  11. COMPAZINE [Concomitant]
     Active Substance: PROCHLORPERAZINE MALEATE
     Indication: NAUSEA
     Dosage: 1 SUPPOSITORY EVERY 12 HOURS, PRN
     Route: 054
     Dates: start: 20150623
  12. HEXADROL [Concomitant]
     Active Substance: DEXAMETHASONE
     Dosage: 8 MG (2 TABLETS) EVERY DAY 2 AND 3 OF EACH CHEMOTHERAPY CYCLE
     Route: 048
     Dates: start: 20160607
  13. NYSTATIN. [Concomitant]
     Active Substance: NYSTATIN
     Dosage: APPLY BID TO AFFECTED AREA
     Route: 061
     Dates: start: 20151113
  14. ZOFRAN [Concomitant]
     Active Substance: ONDANSETRON HYDROCHLORIDE
     Indication: NAUSEA
     Dosage: 1 TABLET EVERY 8 HOURS AS NEEDED
     Route: 048
     Dates: start: 20150623
  15. VENTOLIN HFA [Concomitant]
     Active Substance: ALBUTEROL SULFATE
     Dosage: 1 OR 2 PUFFS EVERY 4 TO 6 HOURS AS NEEDED
     Route: 055
     Dates: start: 20100315
  16. DEXAMETHASONE. [Concomitant]
     Active Substance: DEXAMETHASONE
     Dosage: 10 MG, ONCE (DAY 1 OF CYCLE 1)
     Route: 042
     Dates: start: 20160607, end: 20160607
  17. COMPAZINE [Concomitant]
     Active Substance: PROCHLORPERAZINE MALEATE
     Indication: MIGRAINE
  18. LAMOTRIGINE. [Concomitant]
     Active Substance: LAMOTRIGINE
     Dosage: 1 TABLET, BID
     Route: 048
  19. OXYCODONE HYDROCHLORIDE. [Concomitant]
     Active Substance: OXYCODONE HYDROCHLORIDE
     Dosage: 1 TABLET EVERY 6 HOURS
     Route: 048
     Dates: start: 20150123
  20. PROMETHAZINE HYDROCHLORIDE. [Concomitant]
     Active Substance: PROMETHAZINE HYDROCHLORIDE
     Dosage: 1 TABLET EVERY 6 TO 8 HOURS AS NEEDED
     Route: 048
     Dates: start: 20120615
  21. ZOLPIDEM TARTRATE. [Concomitant]
     Active Substance: ZOLPIDEM TARTRATE
     Dosage: 1 TABLET AT BEDTIME AS NEEDED
     Route: 048
     Dates: start: 20091229
  22. ZOFRAN [Suspect]
     Active Substance: ONDANSETRON HYDROCHLORIDE
     Indication: NAUSEA
     Dosage: 16 MG, ONCE (DAY 1 OF CYCLE 1)
     Route: 048
     Dates: start: 20160607, end: 20160607
  23. DEXAMETHASONE. [Concomitant]
     Active Substance: DEXAMETHASONE
     Dosage: 10 MG, ONCE (DAY 8 OF CYCLE 1)
     Route: 042
     Dates: start: 20160614, end: 20160614
  24. CARBOPLATIN. [Concomitant]
     Active Substance: CARBOPLATIN
     Dosage: DAY 8 OF CYCLE 1
     Dates: start: 20160614, end: 20160614
  25. ALPRAZOLAM. [Concomitant]
     Active Substance: ALPRAZOLAM
     Dosage: 1 TABLET EVERY 6-8 HOURS PRN
     Route: 048
     Dates: start: 20110121
  26. EMEND [Suspect]
     Active Substance: APREPITANT
     Dosage: 150 MG, ONCE
     Route: 042
     Dates: start: 20160705, end: 20160705
  27. DEXAMETHASONE. [Concomitant]
     Active Substance: DEXAMETHASONE
     Dosage: 10 MG, ONCE (DAY 1 OF CYCLE 2)
     Route: 042
     Dates: start: 20160627, end: 20160627
  28. AMLODIPINE BESYLATE. [Concomitant]
     Active Substance: AMLODIPINE BESYLATE
     Dosage: 1 TABLET, QD
     Route: 048
     Dates: start: 20151119
  29. FLUOXETINE HYDROCHLORIDE. [Concomitant]
     Active Substance: FLUOXETINE HYDROCHLORIDE
     Dosage: 1 CAPSULE DAILY
     Route: 048
     Dates: start: 20151113
  30. POTASSIUM CHLORIDE. [Concomitant]
     Active Substance: POTASSIUM CHLORIDE
     Dosage: 1 CAPSULE TWICE DAILY
     Route: 048
     Dates: start: 20150420
  31. PROPRANOLOL HYDROCHLORIDE. [Concomitant]
     Active Substance: PROPRANOLOL HYDROCHLORIDE
     Dosage: 1 TABLET, BID
     Route: 048
     Dates: start: 20090515
  32. TIZANIDINE HYDROCHLORIDE. [Concomitant]
     Active Substance: TIZANIDINE HYDROCHLORIDE
     Dosage: 1 TO 2 TABLETS EVERY 8 HOURS AS NEEDED
     Route: 048
     Dates: start: 20090911

REACTIONS (2)
  - Nausea [Unknown]
  - Nausea [Recovered/Resolved]

NARRATIVE: CASE EVENT DATE: 20160619
